FAERS Safety Report 7911510-4 (Version None)
Quarter: 2011Q4

REPORT INFORMATION
  Report Type: 
  Country: None (occurrence: None)
  Receive Date: 20111101
  Receipt Date: 20110720
  Transmission Date: 20120403
  Serious: No
  Sender: FDA-Public Use
  Company Number: 11-1527(0)

PATIENT
  Age: 51 Year
  Sex: Female
  Weight: 81.6 kg

DRUGS (4)
  1. XEOMIN [Suspect]
     Indication: TORTICOLLIS
     Dosage: (1 IN 1 TOTAL), INTRAMUSCULAR
     Route: 030
     Dates: start: 20110714, end: 20110714
  2. FLUOXETINE HYDROCHLORIDE [Suspect]
     Indication: DEPRESSION
     Dosage: 60 MG (20 MG, 3 IN 1 D), ORAL
     Route: 048
     Dates: start: 20040101
  3. BACLOFEN [Concomitant]
  4. BALSALAZIDE (BALSALAZIDE) [Concomitant]

REACTIONS (2)
  - DIZZINESS [None]
  - DYSPHAGIA [None]
